FAERS Safety Report 5084611-9 (Version None)
Quarter: 2006Q3

REPORT INFORMATION
  Report Type: 
  Country: None (occurrence: None)
  Receive Date: 20060821
  Receipt Date: 20060811
  Transmission Date: 20061208
  Serious: Yes (Death, Hospitalization, Disabling)
  Sender: FDA-Public Use
  Company Number: US-JNJFOC-20060106226

PATIENT
  Sex: Female
  Weight: 45.81 kg

DRUGS (11)
  1. DOXIL [Suspect]
     Route: 042
  2. DOXIL [Suspect]
     Indication: OVARIAN CANCER METASTATIC
     Route: 042
  3. TRABECTEDIN [Suspect]
     Indication: OVARIAN CANCER METASTATIC
     Dosage: DRUG NOT GIVEN
     Route: 042
  4. PROTONIX [Concomitant]
     Indication: VOMITING
     Route: 048
  5. PROTONIX [Concomitant]
     Indication: NAUSEA
     Route: 048
  6. MEGACE [Concomitant]
     Indication: DECREASED APPETITE
     Route: 048
  7. COUMADIN [Concomitant]
  8. NASONEX [Concomitant]
  9. KEPPRA [Concomitant]
     Indication: CONVULSION
  10. COLACE [Concomitant]
     Indication: CONSTIPATION
     Route: 048
  11. BELLADONNA [Concomitant]
     Route: 048

REACTIONS (5)
  - COLONIC OBSTRUCTION [None]
  - NAUSEA [None]
  - OVARIAN CANCER [None]
  - PLEURAL EFFUSION [None]
  - VOMITING [None]
